FAERS Safety Report 16306178 (Version 3)
Quarter: 2022Q2

REPORT INFORMATION
  Report Type: Spontaneous
  Country: US (occurrence: None)
  Receive Date: 20190513
  Receipt Date: 20220610
  Transmission Date: 20220721
  Serious: Yes (Other)
  Sender: FDA-Public Use
  Company Number: 2019SE63697

PATIENT
  Age: 23149 Day
  Sex: Male

DRUGS (62)
  1. PRILOSEC [Suspect]
     Active Substance: OMEPRAZOLE MAGNESIUM
     Indication: Gastrooesophageal reflux disease
     Route: 048
     Dates: start: 1996, end: 2012
  2. PRILOSEC [Suspect]
     Active Substance: OMEPRAZOLE MAGNESIUM
     Indication: Gastrooesophageal reflux disease
     Dosage: GENERIC
     Route: 065
     Dates: start: 2008, end: 2011
  3. ESOMEPRAZOLE [Suspect]
     Active Substance: ESOMEPRAZOLE
     Indication: Gastrooesophageal reflux disease
     Route: 065
  4. ESOMEPRAZOLE [Suspect]
     Active Substance: ESOMEPRAZOLE
     Indication: Gastrooesophageal reflux disease
     Route: 065
  5. DEXILANT [Suspect]
     Active Substance: DEXLANSOPRAZOLE
     Route: 065
  6. LANSOPRAZOLE [Suspect]
     Active Substance: LANSOPRAZOLE
     Indication: Gastrooesophageal reflux disease
     Route: 065
  7. LANSOPRAZOLE [Suspect]
     Active Substance: LANSOPRAZOLE
     Indication: Gastrooesophageal reflux disease
     Route: 065
  8. PROTONIX [Suspect]
     Active Substance: PANTOPRAZOLE SODIUM
     Indication: Gastrooesophageal reflux disease
     Route: 065
     Dates: start: 2000, end: 2012
  9. PROTONIX [Suspect]
     Active Substance: PANTOPRAZOLE SODIUM
     Indication: Gastrooesophageal reflux disease
     Dosage: GENERIC
     Route: 065
     Dates: start: 2012, end: 2018
  10. ACIPHEX [Suspect]
     Active Substance: RABEPRAZOLE SODIUM
     Indication: Gastrooesophageal reflux disease
     Route: 065
     Dates: start: 2008
  11. ACIPHEX [Suspect]
     Active Substance: RABEPRAZOLE SODIUM
     Indication: Gastrooesophageal reflux disease
     Route: 065
     Dates: start: 2008
  12. FUROSEMIDE [Concomitant]
     Active Substance: FUROSEMIDE
  13. LISINOPRIL [Concomitant]
     Active Substance: LISINOPRIL
  14. PRAVASTATIN [Concomitant]
     Active Substance: PRAVASTATIN
     Indication: Cardiac disorder
  15. ENALAPRIL [Concomitant]
     Active Substance: ENALAPRIL
     Indication: Cardiac disorder
  16. CIPROFLOXACIN [Concomitant]
     Active Substance: CIPROFLOXACIN
  17. AMOXICILLIN [Concomitant]
     Active Substance: AMOXICILLIN
  18. ASPIRIN [Concomitant]
     Active Substance: ASPIRIN
     Indication: Gastrooesophageal reflux disease
     Dates: start: 1996, end: 2012
  19. ZANTAC [Concomitant]
     Active Substance: RANITIDINE HYDROCHLORIDE
     Dates: start: 1996, end: 2012
  20. TUMS [Concomitant]
     Active Substance: CALCIUM CARBONATE
     Dates: start: 2011
  21. TUMS [Concomitant]
     Active Substance: CALCIUM CARBONATE
     Dates: start: 2012
  22. ROLAIDS [Concomitant]
     Active Substance: CALCIUM CARBONATE\MAGNESIUM HYDROXIDE
     Dates: start: 2011
  23. ROLAIDS [Concomitant]
     Active Substance: CALCIUM CARBONATE\MAGNESIUM HYDROXIDE
     Dates: start: 2012
  24. CIALIS [Concomitant]
     Active Substance: TADALAFIL
  25. ATENOLOL [Concomitant]
     Active Substance: ATENOLOL
  26. UNSPECIFIED INGREDIENT [Concomitant]
     Active Substance: UNSPECIFIED INGREDIENT
  27. ZOLPIDEM [Concomitant]
     Active Substance: ZOLPIDEM TARTRATE
  28. VIAGRA [Concomitant]
     Active Substance: SILDENAFIL CITRATE
  29. ERYTHROCIN [Concomitant]
     Active Substance: ERYTHROMYCIN LACTOBIONATE
  30. PLAVIX [Concomitant]
     Active Substance: CLOPIDOGREL BISULFATE
  31. WARFARIN [Concomitant]
     Active Substance: WARFARIN
  32. CRESTOR [Concomitant]
     Active Substance: ROSUVASTATIN CALCIUM
  33. FAMOTIDINE [Concomitant]
     Active Substance: FAMOTIDINE
  34. TRAMADOL [Concomitant]
     Active Substance: TRAMADOL
  35. AMLODIPINE [Concomitant]
     Active Substance: AMLODIPINE BESYLATE
  36. AXIRON [Concomitant]
     Active Substance: TESTOSTERONE
  37. PACERONE [Concomitant]
     Active Substance: AMIODARONE HYDROCHLORIDE
  38. EPHEDRA SPP./ZINGIBER OFFICINALE RHIZOME/PAULLINIA CUPANA/SALIX ALBA B [Concomitant]
  39. METFORMIN [Concomitant]
     Active Substance: METFORMIN HYDROCHLORIDE
  40. ONDANSETRON [Concomitant]
     Active Substance: ONDANSETRON
  41. CEPHALEXIN [Concomitant]
     Active Substance: CEPHALEXIN
  42. APIXABAN [Concomitant]
     Active Substance: APIXABAN
  43. DILTIAZEM [Concomitant]
     Active Substance: DILTIAZEM
  44. VITAMINS [Concomitant]
     Active Substance: VITAMINS
  45. POTASSIUM CHLORIDE [Concomitant]
     Active Substance: POTASSIUM CHLORIDE
  46. DOFETILIDE [Concomitant]
     Active Substance: DOFETILIDE
  47. OMEGA 3 [Concomitant]
     Active Substance: CAPSAICIN
  48. VITAMINS [Concomitant]
     Active Substance: VITAMINS
  49. REGLAN [Concomitant]
     Active Substance: METOCLOPRAMIDE HYDROCHLORIDE
  50. RESTORIL [Concomitant]
     Active Substance: TEMAZEPAM
  51. PHENERGAN [Concomitant]
     Active Substance: PROMETHAZINE HYDROCHLORIDE
  52. DEXTROSE [Concomitant]
     Active Substance: DEXTROSE
  53. TAMSULOSIN [Concomitant]
     Active Substance: TAMSULOSIN
  54. ZOLPIDEM TARTRATE [Concomitant]
     Active Substance: ZOLPIDEM TARTRATE
  55. VITAMINS [Concomitant]
     Active Substance: VITAMINS
  56. COENZYME Q [Concomitant]
  57. ERYTHROMYCIN [Concomitant]
     Active Substance: ERYTHROMYCIN
  58. ACETAMINOPHEN AND CODEINE [Concomitant]
     Active Substance: ACETAMINOPHEN\CODEINE PHOSPHATE
  59. WARFARIN [Concomitant]
     Active Substance: WARFARIN
  60. BETHANECHOL [Concomitant]
     Active Substance: BETHANECHOL
  61. TRANSDERM [Concomitant]
  62. MENTHOL [Concomitant]
     Active Substance: MENTHOL

REACTIONS (4)
  - Chronic kidney disease [Not Recovered/Not Resolved]
  - Renal failure [Unknown]
  - Gastrooesophageal reflux disease [Not Recovered/Not Resolved]
  - Impaired gastric emptying [Not Recovered/Not Resolved]

NARRATIVE: CASE EVENT DATE: 20100707
